FAERS Safety Report 21604640 (Version 2)
Quarter: 2022Q4

REPORT INFORMATION
  Report Type: Spontaneous
  Country: PT (occurrence: PT)
  Receive Date: 20221116
  Receipt Date: 20221127
  Transmission Date: 20230113
  Serious: Yes (Death)
  Sender: FDA-Public Use
  Company Number: None

PATIENT
  Age: 61 Year
  Sex: Female
  Weight: 58 kg

DRUGS (1)
  1. PACLITAXEL [Suspect]
     Active Substance: PACLITAXEL
     Indication: Breast cancer
     Dosage: 80MG/M2, FORM STRENGTH : 300 MG, INJECTABLE SOLUTION, ADDITIONAL INFO: METASTATIC BREAST CANCER
     Route: 065
     Dates: start: 20221007, end: 20221007

REACTIONS (4)
  - Dyspnoea [Fatal]
  - Loss of consciousness [Fatal]
  - Vomiting [Fatal]
  - Flushing [Fatal]

NARRATIVE: CASE EVENT DATE: 20221007
